FAERS Safety Report 7183917-7 (Version None)
Quarter: 2010Q4

REPORT INFORMATION
  Report Type: 
  Country: None (occurrence: None)
  Receive Date: 20101222
  Receipt Date: 20101210
  Transmission Date: 20110411
  Serious: Yes (Hospitalization)
  Sender: FDA-Public Use
  Company Number: US-ROCHE-745828

PATIENT
  Sex: Male

DRUGS (3)
  1. BEVACIZUMAB [Suspect]
     Dosage: LAST DOSE PRIOR TO EVENT: 16 NOVEMBER 2010
     Route: 065
     Dates: start: 20101001
  2. CISPLATIN [Suspect]
     Dosage: LAST DOSE PRIOR TO EVENT: 03 NOVEMBER 2010
     Route: 065
     Dates: start: 20101001
  3. CETUXIMAB [Suspect]
     Dosage: LAST DOSE PRIOR TO EVENT: 16 NOVEMBER 2010
     Route: 065
     Dates: start: 20101001

REACTIONS (5)
  - DEHYDRATION [None]
  - DYSPHAGIA [None]
  - EMBOLISM ARTERIAL [None]
  - MUCOSAL INFLAMMATION [None]
  - ODYNOPHAGIA [None]
